FAERS Safety Report 7595307-3 (Version None)
Quarter: 2011Q2

REPORT INFORMATION
  Report Type: 
  Country: None (occurrence: None)
  Receive Date: 20110620
  Receipt Date: 20110420
  Transmission Date: 20111010
  Serious: Yes (Death, Hospitalization)
  Sender: FDA-Public Use
  Company Number: UTC-006514

PATIENT
  Age: 63 Year
  Sex: Female
  Weight: 143.1 kg

DRUGS (3)
  1. TYVASO [Suspect]
     Indication: PULMONARY HYPERTENSION
     Dosage: (6 MCG), INHALATION
     Route: 055
     Dates: start: 20101101, end: 20110203
  2. COUMADIN [Concomitant]
  3. DIURETICS (DIURETICS) [Concomitant]

REACTIONS (4)
  - RESPIRATORY FAILURE [None]
  - HEADACHE [None]
  - DYSPNOEA [None]
  - DISEASE PROGRESSION [None]
